FAERS Safety Report 7398350-2 (Version None)
Quarter: 2011Q2

REPORT INFORMATION
  Report Type: 
  Country: None (occurrence: None)
  Receive Date: 20110406
  Receipt Date: 20110328
  Transmission Date: 20111010
  Serious: Yes (Hospitalization, Disabling, Other)
  Sender: FDA-Public Use
  Company Number: US-MERCK-0810USA05280

PATIENT
  Age: 57 Year
  Sex: Female

DRUGS (1)
  1. FOSAMAX [Suspect]
     Indication: OSTEOPOROSIS
     Route: 048
     Dates: start: 19990101, end: 20070529

REACTIONS (45)
  - ADVERSE EVENT [None]
  - SKIN LESION [None]
  - SEPSIS [None]
  - ORAL DISORDER [None]
  - CELLULITIS [None]
  - HYPOKALAEMIA [None]
  - HYPERBILIRUBINAEMIA [None]
  - MALAISE [None]
  - TOOTH LOSS [None]
  - STRESS [None]
  - KYPHOSCOLIOSIS [None]
  - ACUTE RESPIRATORY FAILURE [None]
  - MULTI-ORGAN FAILURE [None]
  - DIVERTICULITIS [None]
  - PAIN [None]
  - CONSTIPATION [None]
  - WOUND INFECTION [None]
  - TACHYCARDIA [None]
  - COLITIS [None]
  - BLINDNESS [None]
  - ASPERGILLOSIS [None]
  - DERMATITIS CONTACT [None]
  - IMPAIRED HEALING [None]
  - SCOLIOSIS [None]
  - RIB FRACTURE [None]
  - RENAL FAILURE CHRONIC [None]
  - OSTEONECROSIS OF JAW [None]
  - GASTROINTESTINAL HAEMORRHAGE [None]
  - HYPERTENSION [None]
  - JAW DISORDER [None]
  - EPISTAXIS [None]
  - TOOTH FRACTURE [None]
  - SPINAL CORD COMPRESSION [None]
  - DECUBITUS ULCER [None]
  - ANAEMIA OF CHRONIC DISEASE [None]
  - BONE DISORDER [None]
  - CARDIAC FAILURE CONGESTIVE [None]
  - SPINAL FRACTURE [None]
  - DENTAL CARIES [None]
  - HYPERLIPIDAEMIA [None]
  - APHTHOUS STOMATITIS [None]
  - HYPONATRAEMIA [None]
  - URINARY TRACT INFECTION [None]
  - PNEUMONIA [None]
  - BONE PAIN [None]
